FAERS Safety Report 7795775-8 (Version None)
Quarter: 2011Q4

REPORT INFORMATION
  Report Type: 
  Country: None (occurrence: None)
  Receive Date: 20111004
  Receipt Date: 20110923
  Transmission Date: 20120403
  Serious: Yes (Hospitalization, Other)
  Sender: FDA-Public Use
  Company Number: US-BAYER-201026790NA

PATIENT
  Age: 35 Year
  Sex: Female

DRUGS (16)
  1. DIPHENOXYLATE/ATROPINE [DIPHENOXYLATE HYDROCHLORIDE] [Concomitant]
     Dosage: UNK
     Dates: start: 20081101
  2. WELCHOL [Concomitant]
     Dosage: UNK
     Dates: start: 20060801, end: 20070701
  3. PROPRANOLOL [Concomitant]
     Dosage: UNK
     Dates: start: 20081101, end: 20090101
  4. YASMIN [Suspect]
     Indication: PRODUCT USED FOR UNKNOWN INDICATION
     Dosage: UNK
     Dates: start: 20060901, end: 20061121
  5. LOVENOX [Concomitant]
     Dosage: UNK
     Dates: start: 20081101
  6. CHLORDIAZEPOXIDE W/CLIDINIUM [Concomitant]
     Dosage: UNK
     Dates: start: 20060401, end: 20061001
  7. CEPHALEXIN [Concomitant]
     Dosage: UNK
     Dates: start: 20061001
  8. WARFARIN SODIUM [Concomitant]
     Dosage: UNK
     Dates: start: 20090101
  9. LIBRAX [Concomitant]
     Dosage: UNK
     Dates: start: 20090201
  10. PROZAC [Concomitant]
  11. ACETAMINOPHEN [Concomitant]
     Dosage: UNK
     Dates: start: 20090201
  12. FLUOXETINE [Concomitant]
     Dosage: UNK
     Dates: start: 20060701, end: 20061001
  13. MUCINEX [Concomitant]
     Dosage: UNK
     Dates: start: 20090201
  14. METHYLPREDNISOLONE [Concomitant]
     Dosage: UNK
     Dates: start: 20061101
  15. METRONIDAZOLE [Concomitant]
     Dosage: UNK
     Dates: start: 20081101
  16. UNKNOWN DRUG [Concomitant]
     Dosage: UNK
     Dates: start: 20090201

REACTIONS (7)
  - PULMONARY EMBOLISM [None]
  - PAIN [None]
  - GALLBLADDER DISORDER [None]
  - PORTAL HYPERTENSION [None]
  - PORTAL VEIN THROMBOSIS [None]
  - EMOTIONAL DISTRESS [None]
  - VARICES OESOPHAGEAL [None]
